FAERS Safety Report 6022252-7 (Version None)
Quarter: 2008Q4

REPORT INFORMATION
  Report Type: 
  Country: None (occurrence: None)
  Receive Date: 20081229
  Receipt Date: 20081218
  Transmission Date: 20090506
  Serious: Yes (Death)
  Sender: FDA-Public Use
  Company Number: JP-PFIZER INC-2008101250

PATIENT

DRUGS (9)
  1. SILDENAFIL CITRATE [Suspect]
     Indication: PULMONARY HYPERTENSION
     Dosage: 20 MG, 3X/DAY
     Route: 048
     Dates: start: 20081015, end: 20081028
  2. ZESULAN [Concomitant]
     Dosage: UNK
     Route: 048
     Dates: start: 20081014, end: 20081018
  3. CLARITHROMYCIN [Concomitant]
     Dosage: UNK
     Route: 048
     Dates: start: 20081015, end: 20081021
  4. CRAVIT [Concomitant]
     Dosage: UNK
     Route: 048
     Dates: start: 20081015
  5. DEPAS [Concomitant]
     Dosage: UNK
     Route: 048
     Dates: start: 20081023
  6. CODEINE PHOSPHATE [Concomitant]
     Dosage: UNK
     Route: 048
     Dates: start: 20081010, end: 20081022
  7. FULCALIQ [Concomitant]
     Dosage: UNK
     Route: 042
     Dates: start: 20080930
  8. HEPARIN CALCIUM [Concomitant]
     Dosage: UNK
     Route: 042
     Dates: start: 20081015
  9. LASIX [Concomitant]
     Dosage: UNK
     Route: 042
     Dates: start: 20081014

REACTIONS (1)
  - PULMONARY HYPERTENSION [None]
